FAERS Safety Report 17681078 (Version 20)
Quarter: 2023Q1

REPORT INFORMATION
  Report Type: Report from Study
  Country: NL (occurrence: NL)
  Receive Date: 20200417
  Receipt Date: 20230110
  Transmission Date: 20230417
  Serious: Yes (Hospitalization, Other)
  Sender: FDA-Public Use
  Company Number: NVSC2020NL097940

PATIENT
  Age: 7 Year
  Sex: Female
  Weight: 21.3 kg

DRUGS (32)
  1. DABRAFENIB [Suspect]
     Active Substance: DABRAFENIB
     Indication: Astrocytoma
     Dosage: 50 MG, BID (2DD0 (60 %)
     Route: 048
     Dates: start: 20200217, end: 20200603
  2. DABRAFENIB [Suspect]
     Active Substance: DABRAFENIB
     Dosage: 40 MG, BID (2DD)
     Route: 048
     Dates: end: 20201020
  3. DABRAFENIB [Suspect]
     Active Substance: DABRAFENIB
     Dosage: 20 MG, BID (2DD)
     Route: 048
     Dates: end: 20201225
  4. DABRAFENIB [Suspect]
     Active Substance: DABRAFENIB
     Dosage: 40 MG, BID (2DD)
     Route: 048
     Dates: end: 20210324
  5. DABRAFENIB [Suspect]
     Active Substance: DABRAFENIB
     Dosage: 20 MG, BID (2DD) (40 %)
     Route: 048
     Dates: start: 20210329
  6. DABRAFENIB [Suspect]
     Active Substance: DABRAFENIB
     Dosage: 40 MG, BID (2DD)
     Route: 048
     Dates: end: 20210426
  7. DABRAFENIB [Suspect]
     Active Substance: DABRAFENIB
     Dosage: 20 MG, BID (2DD) (40 %)
     Route: 048
     Dates: start: 20210428
  8. DABRAFENIB [Suspect]
     Active Substance: DABRAFENIB
     Dosage: 30 MG, (2DD) (60 %)
     Route: 048
     Dates: end: 20220215
  9. DABRAFENIB [Suspect]
     Active Substance: DABRAFENIB
     Dosage: 30 MG, BID (2DD) (60 %)
     Route: 048
     Dates: start: 20220217, end: 20220319
  10. DABRAFENIB [Suspect]
     Active Substance: DABRAFENIB
     Dosage: UNK, (30 MG, 2 DD, 60 PERCENT)
     Route: 048
     Dates: start: 20200217, end: 20220822
  11. DABRAFENIB [Suspect]
     Active Substance: DABRAFENIB
     Dosage: 30 MG, BID (2DD) (60 %)
     Route: 048
     Dates: start: 20200217, end: 20220917
  12. TRAMETINIB [Suspect]
     Active Substance: TRAMETINIB
     Indication: Astrocytoma
     Dosage: 0.625 MG, QD
     Route: 048
     Dates: start: 20200217, end: 20200603
  13. TRAMETINIB [Suspect]
     Active Substance: TRAMETINIB
     Dosage: UNK
     Route: 048
     Dates: end: 20200709
  14. ONDANSETRON [Concomitant]
     Active Substance: ONDANSETRON
     Indication: Nausea
     Dosage: 4 MG, TID
     Route: 065
  15. AZITHROMYCIN [Concomitant]
     Active Substance: AZITHROMYCIN
     Indication: Antibiotic prophylaxis
     Dosage: 172 MG, TID
     Route: 065
  16. VENTOLIN [Concomitant]
     Active Substance: ALBUTEROL SULFATE
     Indication: Product used for unknown indication
     Dosage: 2.5 MG, BID
     Route: 065
  17. POLYETHYLENE GLYCOLS [Concomitant]
     Active Substance: POLYETHYLENE GLYCOLS
     Indication: Constipation
     Dosage: 4 G, QD
     Route: 065
     Dates: start: 20190306
  18. POLYETHYLENE GLYCOLS [Concomitant]
     Active Substance: POLYETHYLENE GLYCOLS
     Dosage: 15 MG QD/BID
     Route: 065
     Dates: start: 20201207, end: 20201224
  19. POLYETHYLENE GLYCOLS [Concomitant]
     Active Substance: POLYETHYLENE GLYCOLS
     Dosage: 20 G QD/BID
     Route: 065
     Dates: end: 20210426
  20. POLYETHYLENE GLYCOLS [Concomitant]
     Active Substance: POLYETHYLENE GLYCOLS
     Dosage: UNK (10 G (1DD)
     Route: 065
     Dates: start: 20220613, end: 20220822
  21. POLYETHYLENE GLYCOLS [Concomitant]
     Active Substance: POLYETHYLENE GLYCOLS
     Dosage: UNK (10 G (1DD)
     Route: 065
     Dates: start: 20220613, end: 20220916
  22. POLYETHYLENE GLYCOLS [Concomitant]
     Active Substance: POLYETHYLENE GLYCOLS
     Dosage: 10 G, QD
     Route: 065
     Dates: start: 20220613, end: 20221227
  23. CHOLECALCIFEROL [Concomitant]
     Active Substance: CHOLECALCIFEROL
     Indication: Product used for unknown indication
     Dosage: 400 (IE), QD
     Route: 065
  24. MINERAL OIL EMULSION\PETROLATUM [Concomitant]
     Active Substance: MINERAL OIL EMULSION\PETROLATUM
     Indication: Facial paralysis
     Dosage: 250 MG, QID PRN
     Route: 065
     Dates: start: 20201207, end: 20201225
  25. MINERAL OIL EMULSION\PETROLATUM [Concomitant]
     Active Substance: MINERAL OIL EMULSION\PETROLATUM
     Dosage: UNK, QID (STRENGTH: 3, 5 G)
     Route: 065
     Dates: end: 20210426
  26. PRIMPERAN [Concomitant]
     Active Substance: METOCLOPRAMIDE HYDROCHLORIDE
     Indication: Product used for unknown indication
     Dosage: UNK (3DD)
     Route: 065
     Dates: start: 2022, end: 2022
  27. FERROUS FUMARATE [Concomitant]
     Active Substance: FERROUS FUMARATE
     Indication: Serum ferritin decreased
     Dosage: UNK (60 MG 1DD)
     Route: 065
     Dates: start: 20220708, end: 20220821
  28. FERROUS FUMARATE [Concomitant]
     Active Substance: FERROUS FUMARATE
     Dosage: UNK (60 MG 1DD)
     Route: 065
     Dates: start: 20220708, end: 20220916
  29. FERROUS FUMARATE [Concomitant]
     Active Substance: FERROUS FUMARATE
     Dosage: 60 MG, QD
     Route: 065
     Dates: start: 20220708, end: 20221227
  30. VIDISIC CARBOGEL [Concomitant]
     Indication: Facial paralysis
     Dosage: 1 DOSE QID
     Route: 065
     Dates: start: 20201207, end: 20201225
  31. VIDISIC CARBOGEL [Concomitant]
     Dosage: 1 DOSE QID
     Route: 065
     Dates: end: 20210426
  32. METOCLOPRAMIDE [Concomitant]
     Active Substance: METOCLOPRAMIDE
     Indication: Antiemetic supportive care
     Dosage: 3 MG, TID
     Route: 065
     Dates: start: 20220922, end: 20220927

REACTIONS (62)
  - Hypokalaemia [Not Recovered/Not Resolved]
  - COVID-19 pneumonia [Unknown]
  - Headache [Recovered/Resolved]
  - Pancreatitis acute [Recovered/Resolved]
  - Pyrexia [Recovered/Resolved]
  - Dyspnoea [Unknown]
  - Lower respiratory tract inflammation [Not Recovered/Not Resolved]
  - Human bocavirus infection [Unknown]
  - C-reactive protein increased [Unknown]
  - Productive cough [Unknown]
  - Pneumonia [Not Recovered/Not Resolved]
  - Pyrexia [Recovered/Resolved]
  - Abdominal pain upper [Recovering/Resolving]
  - Urinary tract infection [Recovered/Resolved]
  - Pyrexia [Recovered/Resolved]
  - Tachycardia [Unknown]
  - Dysuria [Recovered/Resolved]
  - Hyperglycaemia [Recovered/Resolved]
  - Oedema peripheral [Not Recovered/Not Resolved]
  - Face oedema [Not Recovered/Not Resolved]
  - Lower respiratory tract infection [Not Recovered/Not Resolved]
  - Bronchitis [Recovered/Resolved]
  - Tachypnoea [Not Recovered/Not Resolved]
  - Pyrexia [Not Recovered/Not Resolved]
  - Infection [Recovered/Resolved]
  - Infection [Recovered/Resolved]
  - Vascular device infection [Recovered/Resolved]
  - Pyrexia [Recovered/Resolved]
  - Staphylococcal infection [Unknown]
  - Syncope [Recovered/Resolved]
  - Syncope [Recovered/Resolved]
  - Pyrexia [Recovered/Resolved]
  - Hypoxia [Not Recovered/Not Resolved]
  - Oxygen saturation decreased [Not Recovered/Not Resolved]
  - Hypoglycaemia [Recovering/Resolving]
  - Loss of consciousness [Recovered/Resolved]
  - Hypoglycaemia [Recovered/Resolved]
  - Loss of consciousness [Recovered/Resolved]
  - Pneumatosis intestinalis [Not Recovered/Not Resolved]
  - Pyrexia [Recovered/Resolved]
  - Diarrhoea [Not Recovered/Not Resolved]
  - Malaise [Unknown]
  - Secretion discharge [Unknown]
  - Body temperature increased [Unknown]
  - White blood cell count increased [Unknown]
  - Pallor [Unknown]
  - Fatigue [Unknown]
  - Hypoglycaemia [Unknown]
  - Lagophthalmos [Recovering/Resolving]
  - Corneal erosion [Recovering/Resolving]
  - Hyperglycaemia [Recovered/Resolved]
  - Anaemia [Recovered/Resolved]
  - Abdominal pain upper [Recovered/Resolved]
  - Headache [Recovered/Resolved]
  - Hyperglycaemia [Unknown]
  - Hyponatraemia [Recovered/Resolved]
  - Respiratory alkalosis [Recovering/Resolving]
  - Hypophosphataemia [Recovering/Resolving]
  - Anger [Recovered/Resolved]
  - Urinary incontinence [Recovered/Resolved]
  - Rectal prolapse [Recovered/Resolved]
  - Dizziness [Recovered/Resolved]

NARRATIVE: CASE EVENT DATE: 20200219
